FAERS Safety Report 14860120 (Version 1)
Quarter: 2018Q2

REPORT INFORMATION
  Report Type: Spontaneous
  Country: US (occurrence: US)
  Receive Date: 20180508
  Receipt Date: 20180508
  Transmission Date: 20180711
  Serious: Yes (Death, Other)
  Sender: FDA-Public Use
  Company Number: US-EGALET US INC-US-2018EGA000359

PATIENT
  Age: 19 Month
  Sex: Female

DRUGS (1)
  1. OXYCODONE HYDROCHLORIDE. [Suspect]
     Active Substance: OXYCODONE HYDROCHLORIDE
     Indication: PRODUCT USED FOR UNKNOWN INDICATION
     Dosage: UNK

REACTIONS (8)
  - Acute lung injury [Unknown]
  - Toxicity to various agents [Fatal]
  - Brain death [Fatal]
  - Coma neonatal [Unknown]
  - Tachycardia [Unknown]
  - Neonatal hypotension [Unknown]
  - Pneumonia aspiration [Unknown]
  - Depressed level of consciousness [Unknown]
